FAERS Safety Report 7288063-X (Version None)
Quarter: 2011Q1

REPORT INFORMATION
  Report Type: 
  Country: None (occurrence: None)
  Receive Date: 20110211
  Receipt Date: 20110203
  Transmission Date: 20110831
  Serious: Yes (Death, Life-Threatening, Hospitalization)
  Sender: FDA-Public Use
  Company Number: JP-EISAI INC-E3810-04255-SPO-JP

PATIENT
  Sex: Male
  Weight: 56 kg

DRUGS (12)
  1. ULGUT [Concomitant]
     Indication: GASTRIC ULCER
     Route: 048
     Dates: start: 20040908, end: 20101111
  2. ALOSITOL [Concomitant]
     Indication: HYPERURICAEMIA
     Route: 048
     Dates: start: 20040908, end: 20101111
  3. ASPIRIN [Concomitant]
     Indication: ANGINA PECTORIS
     Route: 041
     Dates: start: 20100716, end: 20101111
  4. PLAVIX [Suspect]
     Indication: STENT PLACEMENT
     Route: 048
     Dates: start: 20100927, end: 20101111
  5. LANDEL [Concomitant]
     Indication: HYPERTENSION
     Route: 048
     Dates: start: 20060615, end: 20101111
  6. LASIX [Concomitant]
     Indication: CARDIAC FAILURE CHRONIC
     Route: 048
     Dates: start: 20100908, end: 20101111
  7. BLOPRESS [Concomitant]
     Indication: HYPERTENSION
     Route: 048
     Dates: start: 20040908, end: 20101019
  8. BEZAFIBRATE [Concomitant]
     Indication: HYPERLIPIDAEMIA
     Route: 048
     Dates: start: 20040908, end: 20101111
  9. PARIET (RABEPRAZOLE) [Suspect]
     Indication: GASTRIC ULCER
     Route: 048
     Dates: start: 20101104, end: 20101111
  10. BIFIDOBACTERIUM [Concomitant]
     Indication: DIARRHOEA
     Route: 048
     Dates: start: 20040908, end: 20101111
  11. ITOROL [Concomitant]
     Indication: ANGINA PECTORIS
     Route: 048
     Dates: start: 20100716, end: 20101111
  12. MYSLEE [Concomitant]
     Route: 048
     Dates: start: 20100112, end: 20101111

REACTIONS (2)
  - INTERSTITIAL LUNG DISEASE [None]
  - LIVER DISORDER [None]
